FAERS Safety Report 12395713 (Version 1)
Quarter: 2016Q2

REPORT INFORMATION
  Report Type: Report from Study
  Country: US (occurrence: US)
  Receive Date: 20160523
  Receipt Date: 20160523
  Transmission Date: 20160815
  Serious: Yes (Hospitalization)
  Sender: FDA-Public Use
  Company Number: US-ACTELION-A-US2016-136396

PATIENT
  Age: 79 Year
  Sex: Female

DRUGS (15)
  1. ESCITALOPRAM [Concomitant]
     Active Substance: ESCITALOPRAM OXALATE
  2. AMOXICILLIN. [Concomitant]
     Active Substance: AMOXICILLIN
  3. TRACLEER [Suspect]
     Active Substance: BOSENTAN
     Indication: PULMONARY HYPERTENSION
     Dosage: 125 MG, UNK
     Route: 048
     Dates: start: 20160512
  4. WARFARIN [Concomitant]
     Active Substance: WARFARIN
  5. LIDODERM [Concomitant]
     Active Substance: LIDOCAINE
  6. AMLODIPINE [Concomitant]
     Active Substance: AMLODIPINE BESYLATE
  7. ANTIPYRINE + BENZOCAINE [Concomitant]
  8. SPIRONOLACTONE. [Concomitant]
     Active Substance: SPIRONOLACTONE
  9. AZITHROMYCIN ANHYDROUS. [Concomitant]
     Active Substance: AZITHROMYCIN ANHYDROUS
  10. CLINDAMYCIN [Concomitant]
     Active Substance: CLINDAMYCIN\CLINDAMYCIN PHOSPHATE
  11. PREDNISONE. [Concomitant]
     Active Substance: PREDNISONE
  12. NEOMYCIN AND POLYMYXIN B SULFATES AND HYDROCO [Concomitant]
  13. TAMIFLU [Concomitant]
     Active Substance: OSELTAMIVIR PHOSPHATE
  14. PRAVASTATIN [Concomitant]
     Active Substance: PRAVASTATIN\PRAVASTATIN SODIUM
  15. TOBRAMYCIN. [Concomitant]
     Active Substance: TOBRAMYCIN

REACTIONS (3)
  - Fall [Recovering/Resolving]
  - Pneumonia [Recovering/Resolving]
  - Thrombosis [Recovering/Resolving]
